FAERS Safety Report 10601308 (Version 3)
Quarter: 2015Q3

REPORT INFORMATION
  Report Type: Report from Study
  Country: DE (occurrence: DE)
  Receive Date: 20141124
  Receipt Date: 20150819
  Transmission Date: 20151125
  Serious: Yes (Life-Threatening)
  Sender: FDA-Public Use
  Company Number: DE-CELGENE-062-21880-11072118

PATIENT
  Age: 72 Year
  Sex: Female
  Weight: 55 kg

DRUGS (6)
  1. REVLIMID [Suspect]
     Active Substance: LENALIDOMIDE
     Indication: PLASMA CELL MYELOMA
     Route: 048
     Dates: start: 20101115, end: 20101205
  2. REVLIMID [Suspect]
     Active Substance: LENALIDOMIDE
     Dosage: 500 MILLIGRAM
     Route: 048
     Dates: start: 20101213, end: 20110102
  3. REVLIMID [Suspect]
     Active Substance: LENALIDOMIDE
     Dosage: 12 GRAM
     Route: 048
     Dates: start: 20110110, end: 20110130
  4. REVLIMID [Suspect]
     Active Substance: LENALIDOMIDE
     Dosage: 1.5 UNKNOWN
     Route: 048
     Dates: start: 20110628, end: 20110705
  5. DEXAMETHASONE. [Suspect]
     Active Substance: DEXAMETHASONE
     Indication: PLASMA CELL MYELOMA
     Route: 048
     Dates: start: 20101115, end: 20110327
  6. DEXAMETHASONE. [Suspect]
     Active Substance: DEXAMETHASONE
     Dosage: 2400 UNKNOWN
     Route: 048
     Dates: start: 20110328, end: 20110524

REACTIONS (1)
  - Paraspinal abscess [Recovered/Resolved]

NARRATIVE: CASE EVENT DATE: 20110715
